FAERS Safety Report 12482010 (Version 1)
Quarter: 2016Q2

REPORT INFORMATION
  Report Type: Spontaneous
  Country: JP (occurrence: JP)
  Receive Date: 20160620
  Receipt Date: 20160620
  Transmission Date: 20160815
  Serious: Yes (Death)
  Sender: FDA-Public Use
  Company Number: PHJP1900JP003931

PATIENT
  Age: 16 Year
  Sex: Male

DRUGS (18)
  1. SANDIMMUN INJECTION [Suspect]
     Active Substance: CYCLOSPORINE
     Dosage: 340 MG, QD
     Dates: start: 19910120, end: 19910123
  2. SANDIMMUN SOLUTION [Suspect]
     Active Substance: CYCLOSPORINE
     Dosage: 680 MG, QD
     Route: 048
     Dates: start: 19910131, end: 19910206
  3. SOLU-MEDROL [Concomitant]
     Active Substance: METHYLPREDNISOLONE SODIUM SUCCINATE
     Dosage: 670 MG, QD
     Dates: start: 19910210, end: 19910210
  4. PREDONINE [Concomitant]
     Active Substance: PREDNISOLONE\PREDNISOLONE ACETATE\PREDNISOLONE SODIUM SUCCINATE
     Dosage: 60 MG, QD
     Route: 048
     Dates: start: 19910217, end: 19910314
  5. NEUTROGIN [Concomitant]
     Active Substance: LENOGRASTIM
     Indication: LEUKOPENIA
     Dosage: 250 UNK, UNK
     Dates: start: 19910204, end: 19910208
  6. SANDIMMUN SOLUTION [Suspect]
     Active Substance: CYCLOSPORINE
     Dosage: 300 MG, QD
     Route: 048
     Dates: start: 19910314, end: 19910322
  7. SOLU-MEDROL [Concomitant]
     Active Substance: METHYLPREDNISOLONE SODIUM SUCCINATE
     Indication: PROPHYLAXIS AGAINST TRANSPLANT REJECTION
     Dosage: 1350 MG, QD
     Dates: start: 19910207, end: 19910329
  8. SOLU-MEDROL [Concomitant]
     Active Substance: METHYLPREDNISOLONE SODIUM SUCCINATE
     Dosage: 340 MG, QD
     Dates: start: 19910211, end: 19910211
  9. SANDIMMUN INJECTION [Suspect]
     Active Substance: CYCLOSPORINE
     Indication: PROPHYLAXIS AGAINST TRANSPLANT REJECTION
     Dosage: 310 MG, QD
     Dates: start: 19910117, end: 19910119
  10. PREDONINE [Concomitant]
     Active Substance: PREDNISOLONE\PREDNISOLONE ACETATE\PREDNISOLONE SODIUM SUCCINATE
     Dosage: 10 MG, QD
     Route: 048
     Dates: start: 19910319, end: 19910322
  11. SANDIMMUN INJECTION [Suspect]
     Active Substance: CYCLOSPORINE
     Dosage: 280 MG, QD
     Dates: start: 19910207, end: 19910213
  12. PREDONINE [Concomitant]
     Active Substance: PREDNISOLONE\PREDNISOLONE ACETATE\PREDNISOLONE SODIUM SUCCINATE
     Dosage: 30 MG, QD
     Route: 048
     Dates: start: 19910315, end: 19910318
  13. SANDIMMUN INJECTION [Suspect]
     Active Substance: CYCLOSPORINE
     Dosage: 200 MG, QD
     Route: 065
     Dates: start: 19910214, end: 19910313
  14. SOLU-MEDROL [Concomitant]
     Active Substance: METHYLPREDNISOLONE SODIUM SUCCINATE
     Dosage: 100 MG, QD
     Route: 065
     Dates: start: 19910212, end: 19910212
  15. PREDONINE [Concomitant]
     Active Substance: PREDNISOLONE\PREDNISOLONE ACETATE\PREDNISOLONE SODIUM SUCCINATE
     Indication: PROPHYLAXIS AGAINST TRANSPLANT REJECTION
     Dosage: 50 MG, QD
     Dates: start: 19910213, end: 19910213
  16. PREDONINE [Concomitant]
     Active Substance: PREDNISOLONE\PREDNISOLONE ACETATE\PREDNISOLONE SODIUM SUCCINATE
     Dosage: 30 MG, QD
     Route: 065
     Dates: start: 19910214, end: 19910220
  17. PREDONINE [Concomitant]
     Active Substance: PREDNISOLONE\PREDNISOLONE ACETATE\PREDNISOLONE SODIUM SUCCINATE
     Indication: PRODUCT USED FOR UNKNOWN INDICATION
     Dosage: 50 MG, QD
     Route: 048
     Dates: start: 19910216, end: 19910216
  18. SANDIMMUN SOLUTION [Suspect]
     Active Substance: CYCLOSPORINE
     Indication: PRODUCT USED FOR UNKNOWN INDICATION
     Dosage: 480 MG, QD
     Route: 048
     Dates: start: 19910124, end: 19910130

REACTIONS (4)
  - Blood urea increased [Recovered/Resolved]
  - Pneumonia cytomegaloviral [Fatal]
  - Hypertension [Recovered/Resolved]
  - Oedema [Recovered/Resolved]
